FAERS Safety Report 8434974-9 (Version None)
Quarter: 2012Q2

REPORT INFORMATION
  Report Type: 
  Country: None (occurrence: None)
  Receive Date: 20120614
  Receipt Date: 20120612
  Transmission Date: 20120825
  Serious: No
  Sender: FDA-Public Use
  Company Number: US-PFIZER INC-2012142161

PATIENT
  Sex: Female

DRUGS (2)
  1. SOLU-MEDROL [Suspect]
     Dosage: UNK
     Dates: start: 20110101
  2. COPAXONE [Suspect]
     Dosage: UNK
     Dates: start: 20110101

REACTIONS (3)
  - GAIT DISTURBANCE [None]
  - VISION BLURRED [None]
  - URINARY INCONTINENCE [None]
